FAERS Safety Report 4262079-X (Version None)
Quarter: 2004Q1

REPORT INFORMATION
  Report Type: 
  Country: None (occurrence: None)
  Receive Date: 20040102
  Receipt Date: 20031220
  Transmission Date: 20041129
  Serious: Yes (Hospitalization)
  Sender: FDA-Public Use
  Company Number: GB-GLAXOSMITHKLINE-B0318314A

PATIENT
  Age: 64 Year
  Sex: Male

DRUGS (6)
  1. DIGOXIN [Suspect]
     Indication: ATRIAL FIBRILLATION
     Dosage: 250MCG PER DAY
     Route: 048
  2. ENALAPRIL [Concomitant]
     Dosage: 40MG PER DAY
     Route: 048
  3. DOXAZOSIN MESYLATE [Concomitant]
     Dosage: 4MG PER DAY
     Route: 048
  4. SPIRONOLACTONE [Concomitant]
     Dosage: 25MG PER DAY
     Route: 048
  5. FRUSEMIDE [Concomitant]
     Dosage: 120MG PER DAY
     Route: 048
  6. WARFARIN SODIUM [Concomitant]
     Route: 065

REACTIONS (5)
  - ANOREXIA [None]
  - DIZZINESS [None]
  - MALAISE [None]
  - THERAPEUTIC AGENT TOXICITY [None]
  - VISION BLURRED [None]
